FAERS Safety Report 7043933-2 (Version None)
Quarter: 2010Q4

REPORT INFORMATION
  Report Type: 
  Country: None (occurrence: None)
  Receive Date: 20101013
  Receipt Date: 20101007
  Transmission Date: 20110411
  Serious: Yes (Death, Hospitalization, Other)
  Sender: FDA-Public Use
  Company Number: US-AMGEN-QUU424623

PATIENT
  Sex: Female
  Weight: 94.4 kg

DRUGS (11)
  1. NPLATE [Suspect]
     Indication: IDIOPATHIC THROMBOCYTOPENIC PURPURA
     Dates: start: 20100623, end: 20100714
  2. CORTICOSTEROIDS [Concomitant]
  3. PREDNISONE [Concomitant]
  4. PROCRIT [Concomitant]
     Dates: start: 20100101
  5. LANTUS [Concomitant]
  6. SYNTHROID [Concomitant]
  7. METOPROLOL [Concomitant]
  8. PEPCID [Concomitant]
  9. CALCIUM [Concomitant]
  10. VITAMIN D [Concomitant]
  11. OXYCODONE HCL [Concomitant]

REACTIONS (9)
  - ACUTE MYELOID LEUKAEMIA [None]
  - DEATH [None]
  - DRUG INEFFECTIVE [None]
  - DYSPNOEA [None]
  - FLUSHING [None]
  - HYPERSENSITIVITY [None]
  - LEUKAEMIA [None]
  - MUSCLE SPASMS [None]
  - PRURITUS [None]
